FAERS Safety Report 10866426 (Version 1)
Quarter: 2015Q1

REPORT INFORMATION
  Report Type: Spontaneous
  Country: US (occurrence: None)
  Receive Date: 20150219
  Receipt Date: 20150219
  Transmission Date: 20150721
  Serious: Yes (Other)
  Sender: FDA-Public Use
  Company Number: None

PATIENT
  Age: 35 Year
  Sex: Female
  Weight: 63.5 kg

DRUGS (3)
  1. DIAZEPAM 2 MG TEVA PHARMACE [Suspect]
     Active Substance: DIAZEPAM
     Indication: MUSCLE SPASMS
     Dosage: 1 PILL 2 X PER DAY TAKEN BY MOUTH
     Route: 048
     Dates: start: 20140910, end: 20140930
  2. DIAZEPAM 2 MG TEVA PHARMACE [Suspect]
     Active Substance: DIAZEPAM
     Indication: TEMPOROMANDIBULAR JOINT SYNDROME
     Dosage: 1 PILL 2 X PER DAY TAKEN BY MOUTH
     Route: 048
     Dates: start: 20140910, end: 20140930
  3. DIAZEPAM 2 MG TEVA PHARMACE [Suspect]
     Active Substance: DIAZEPAM
     Indication: ANXIETY
     Dosage: 1 PILL 2 X PER DAY TAKEN BY MOUTH
     Route: 048
     Dates: start: 20140910, end: 20140930

REACTIONS (7)
  - Disorientation [None]
  - Hyperhidrosis [None]
  - Malaise [None]
  - Cold sweat [None]
  - Discomfort [None]
  - Vertigo [None]
  - Feeling cold [None]

NARRATIVE: CASE EVENT DATE: 20140910
